FAERS Safety Report 6603516-2 (Version None)
Quarter: 2010Q1

REPORT INFORMATION
  Report Type: 
  Country: None (occurrence: None)
  Receive Date: 20100226
  Receipt Date: 20090925
  Transmission Date: 20100710
  Serious: No
  Sender: FDA-Public Use
  Company Number: A0802838A

PATIENT
  Age: 52 Year
  Sex: Female

DRUGS (9)
  1. VALTREX [Suspect]
     Indication: GENITAL HERPES
     Dosage: 500MG TWICE PER DAY
     Route: 048
  2. IMITREX [Concomitant]
  3. LYRICA [Concomitant]
  4. LORTAB [Concomitant]
  5. AMBIEN [Concomitant]
  6. LIDODERM [Concomitant]
  7. ZANAFLEX [Concomitant]
  8. PROVENTIL [Concomitant]
  9. PAMINE [Concomitant]

REACTIONS (3)
  - BLOOD URINE PRESENT [None]
  - DRUG INEFFECTIVE [None]
  - PRODUCT QUALITY ISSUE [None]
